FAERS Safety Report 7277377-5 (Version None)
Quarter: 2010Q4

REPORT INFORMATION
  Report Type: 
  Country: None (occurrence: None)
  Receive Date: 20101201
  Receipt Date: 20091119
  Transmission Date: 20110411
  Serious: No
  Sender: FDA-Public Use
  Company Number: 284257

PATIENT
  Age: 69 Year
  Sex: Male

DRUGS (10)
  1. NOVOLOG [Suspect]
     Indication: INSULIN-REQUIRING TYPE 2 DIABETES MELLITUS
     Dosage: SLIDING SCALE, SUBCUTANEOUS, SUBCUTANEOUS
     Route: 058
  2. NOVOLOG [Suspect]
  3. VITAMIN C /00008001/ (ASCORBIC ACID) [Concomitant]
  4. CRESTOR [Concomitant]
  5. FISH OIL (FISH OIL) [Concomitant]
  6. MULTIVITAMIN /00097801/ (ASCORBIC ACID, CALCIUM PANTOTHENATE, ERGOCALC [Concomitant]
  7. ASPIRIN [Concomitant]
  8. TEVETEN /01347301/ (EPROSARTAN) [Concomitant]
  9. LANTUS [Concomitant]
  10. HUMALOG /00030501/ (INSULIN) [Concomitant]

REACTIONS (2)
  - BLOOD GLUCOSE INCREASED [None]
  - PRODUCT QUALITY ISSUE [None]
